FAERS Safety Report 8884190 (Version 4)
Quarter: 2014Q2

REPORT INFORMATION
  Report Type: Spontaneous
  Country: US (occurrence: US)
  Receive Date: 20121102
  Receipt Date: 20140407
  Transmission Date: 20141212
  Serious: No
  Sender: FDA-Public Use
  Company Number: US-ASTRAZENECA-2012SE13267

PATIENT
  Age: 53 Year
  Sex: Female

DRUGS (4)
  1. CRESTOR [Suspect]
     Indication: BLOOD CHOLESTEROL ABNORMAL
     Route: 048
  2. PROZAC [Concomitant]
  3. DEPAKOTE [Concomitant]
  4. FLEXERIL [Concomitant]

REACTIONS (1)
  - Swelling [Unknown]
